FAERS Safety Report 8606977-2 (Version None)
Quarter: 2012Q3

REPORT INFORMATION
  Report Type: 
  Country: None (occurrence: None)
  Receive Date: 20120820
  Receipt Date: 20120815
  Transmission Date: 20120928
  Serious: No
  Sender: FDA-Public Use
  Company Number: US-PFIZER INC-2012186541

PATIENT
  Sex: Female

DRUGS (1)
  1. LYRICA [Suspect]
     Dosage: UNK

REACTIONS (6)
  - DIZZINESS [None]
  - SOMNOLENCE [None]
  - HEADACHE [None]
  - WEIGHT INCREASED [None]
  - PYREXIA [None]
  - FEELING ABNORMAL [None]
